FAERS Safety Report 24777222 (Version 1)
Quarter: 2024Q4

REPORT INFORMATION
  Report Type: Spontaneous
  Country: US (occurrence: US)
  Receive Date: 20241226
  Receipt Date: 20241226
  Transmission Date: 20250115
  Serious: No
  Sender: VERO BIOTECH
  Company Number: US-VEROBIOTECH-2024USVEROSPO00340

PATIENT
  Age: 2 Week
  Sex: Male

DRUGS (1)
  1. GENOSYL [Suspect]
     Active Substance: NITRIC OXIDE
     Indication: Product used for unknown indication
     Dosage: 20 PPM

REACTIONS (2)
  - Oxygen saturation decreased [Unknown]
  - Underdose [Unknown]
